FAERS Safety Report 7737571-3 (Version None)
Quarter: 2011Q3

REPORT INFORMATION
  Report Type: 
  Country: None (occurrence: None)
  Receive Date: 20110908
  Receipt Date: 20110901
  Transmission Date: 20111222
  Serious: Yes (Other)
  Sender: FDA-Public Use
  Company Number: GB-TEVA-297087ISR

PATIENT
  Sex: Male
  Weight: 155 kg

DRUGS (2)
  1. BISOPROLOL FUMARATE [Suspect]
     Indication: HYPERTENSION
     Dosage: 5 MILLIGRAM;
     Route: 048
     Dates: start: 20060510, end: 20110610
  2. ANADIN [Concomitant]
     Dates: start: 20060510

REACTIONS (1)
  - GRANULOMA [None]
